FAERS Safety Report 9592457 (Version 2)
Quarter: 2013Q4

REPORT INFORMATION
  Report Type: Spontaneous
  Country: TR (occurrence: TR)
  Receive Date: 20131004
  Receipt Date: 20131010
  Transmission Date: 20140711
  Serious: Yes (Other)
  Sender: FDA-Public Use
  Company Number: TR-TAKEDA-2013TEU000793

PATIENT
  Sex: 0

DRUGS (2)
  1. ACTOS [Suspect]
     Indication: HODGKIN^S DISEASE
     Route: 048
  2. ACTOS [Suspect]
     Indication: ANAPLASTIC LARGE CELL LYMPHOMA T- AND NULL-CELL TYPES

REACTIONS (2)
  - Libido decreased [Unknown]
  - Erectile dysfunction [Unknown]
